FAERS Safety Report 17959833 (Version 1)
Quarter: 2020Q2

REPORT INFORMATION
  Report Type: Spontaneous
  Country: CA (occurrence: CA)
  Receive Date: 20200630
  Receipt Date: 20200630
  Transmission Date: 20200714
  Serious: Yes (Disabling)
  Sender: FDA-Public Use
  Company Number: CA-AUROBINDO-AUR-APL-2019-069275

PATIENT
  Age: 73 Year
  Sex: Male

DRUGS (2)
  1. VALSARTAN. [Suspect]
     Active Substance: VALSARTAN
     Indication: HYPERTENSION
     Dosage: 160 MILLIGRAM, ONCE A DAY
     Route: 048
  2. VALSARTAN. [Suspect]
     Active Substance: VALSARTAN
     Dosage: 320 MILLIGRAM, ONCE A DAY
     Route: 048

REACTIONS (2)
  - Product substitution issue [Recovered/Resolved]
  - Blood pressure increased [Recovered/Resolved]
